FAERS Safety Report 5720022-8 (Version None)
Quarter: 2008Q2

REPORT INFORMATION
  Report Type: 
  Country: None (occurrence: None)
  Receive Date: 20080428
  Receipt Date: 20080421
  Transmission Date: 20081010
  Serious: Yes (Other)
  Sender: FDA-Public Use
  Company Number: US-ASTRAZENECA-2008UW08108

PATIENT
  Age: 66 Year
  Sex: Female
  Weight: 86.6 kg

DRUGS (12)
  1. SEROQUEL [Suspect]
     Indication: INSOMNIA
     Route: 048
  2. DILANTIN [Concomitant]
  3. COUMADIN [Concomitant]
  4. LASIX [Concomitant]
  5. ISOSORBIDE DINITRATE [Concomitant]
  6. SYNTHROID [Concomitant]
  7. ZESTRIL [Concomitant]
     Route: 048
  8. TOPROL-XL [Concomitant]
     Route: 048
  9. POTASSIUM CHLORIDE [Concomitant]
  10. STOOL SOFTENER [Concomitant]
  11. PAXIL [Concomitant]
  12. PREVACID [Concomitant]

REACTIONS (17)
  - ABDOMINAL PAIN [None]
  - ACTIVITIES OF DAILY LIVING IMPAIRED [None]
  - BLOOD PRESSURE DECREASED [None]
  - CONFUSIONAL STATE [None]
  - CONSTIPATION [None]
  - DEPRESSED LEVEL OF CONSCIOUSNESS [None]
  - DIZZINESS [None]
  - FALL [None]
  - HYPERHIDROSIS [None]
  - INTERNATIONAL NORMALISED RATIO [None]
  - MUSCLE SPASMS [None]
  - MUSCULAR WEAKNESS [None]
  - MYALGIA [None]
  - PHARYNGOLARYNGEAL PAIN [None]
  - PULSE ABNORMAL [None]
  - TREMOR [None]
  - WEIGHT INCREASED [None]
